FAERS Safety Report 9666084 (Version 1)
Quarter: 2013Q4

REPORT INFORMATION
  Report Type: Spontaneous
  Country: US (occurrence: US)
  Receive Date: 20131104
  Receipt Date: 20131104
  Transmission Date: 20140711
  Serious: Yes (Hospitalization)
  Sender: FDA-Public Use
  Company Number: US-BIOGENIDEC-2013BI105540

PATIENT
  Sex: Female

DRUGS (6)
  1. AVONEX [Suspect]
     Indication: MULTIPLE SCLEROSIS
     Route: 030
     Dates: start: 20100728, end: 20120801
  2. AVONEX [Suspect]
     Indication: MULTIPLE SCLEROSIS
     Route: 030
     Dates: start: 20120801, end: 2013
  3. AVONEX [Suspect]
     Indication: MULTIPLE SCLEROSIS
     Route: 030
     Dates: start: 2013
  4. COLACE [Concomitant]
  5. SYNTHROID [Concomitant]
     Indication: GOITRE
     Dates: start: 2006
  6. SYNTHROID [Concomitant]
     Indication: THYROIDECTOMY
     Dates: start: 2006

REACTIONS (7)
  - Nasopharyngitis [Recovered/Resolved]
  - Central nervous system lesion [Unknown]
  - Multiple sclerosis relapse [Recovered/Resolved]
  - Hyperkeratosis [Not Recovered/Not Resolved]
  - Migraine [Unknown]
  - Memory impairment [Unknown]
  - Muscle spasms [Not Recovered/Not Resolved]
